FAERS Safety Report 9478400 (Version 2)
Quarter: 2013Q3

REPORT INFORMATION
  Report Type: Report from Study
  Country: CA (occurrence: CA)
  Receive Date: 20130827
  Receipt Date: 20130827
  Transmission Date: 20140515
  Serious: Yes (Other)
  Sender: FDA-Public Use
  Company Number: CA-JNJFOC-20130600896

PATIENT
  Age: 63 Year
  Sex: Female
  Weight: 56 kg

DRUGS (11)
  1. REMICADE [Suspect]
     Indication: ANKYLOSING SPONDYLITIS
     Route: 042
     Dates: start: 20090825
  2. OMEGA 3 [Concomitant]
     Route: 048
  3. CALCIUM [Concomitant]
     Route: 048
  4. VITAMIN C [Concomitant]
     Route: 048
  5. VITAMIN D [Concomitant]
     Route: 048
  6. CADUET [Concomitant]
     Route: 048
  7. EFFEXOR [Concomitant]
     Route: 048
  8. LOSEC [Concomitant]
     Route: 048
  9. IMURAN [Concomitant]
     Route: 048
  10. NAPROXEN [Concomitant]
     Route: 065
  11. MORPHINE [Concomitant]
     Route: 065

REACTIONS (2)
  - Wrist surgery [Not Recovered/Not Resolved]
  - Pain in extremity [Not Recovered/Not Resolved]
